FAERS Safety Report 5514755-6 (Version None)
Quarter: 2007Q4

REPORT INFORMATION
  Report Type: 
  Country: None (occurrence: None)
  Receive Date: 20071113
  Receipt Date: 20071030
  Transmission Date: 20080405
  Serious: Yes (Hospitalization)
  Sender: FDA-Public Use
  Company Number: GB-RANBAXY-2007RR-11149

PATIENT

DRUGS (2)
  1. ERYTHROMYCIN TABLETS BP 250MG [Suspect]
     Indication: ENDOCARDITIS PROPHYLAXIS
     Dosage: 1500 MG, UNK
     Dates: start: 19980615, end: 19980615
  2. CLINDAMYCIN HCL [Suspect]
     Indication: ENDOCARDITIS PROPHYLAXIS
     Dosage: UNK
     Dates: start: 19980615, end: 19980615

REACTIONS (2)
  - CLOSTRIDIUM DIFFICILE COLITIS [None]
  - ORTHOSTATIC HYPOTENSION [None]
